FAERS Safety Report 17444728 (Version 20)
Quarter: 2023Q1

REPORT INFORMATION
  Report Type: Spontaneous
  Country: GR (occurrence: GR)
  Receive Date: 20200221
  Receipt Date: 20230329
  Transmission Date: 20230418
  Serious: Yes (Hospitalization, Other)
  Sender: FDA-Public Use
  Company Number: GR-ROCHE-2528781

PATIENT
  Sex: Female
  Weight: 60 kg

DRUGS (63)
  1. CUBICIN [Suspect]
     Active Substance: DAPTOMYCIN
     Indication: Non-Hodgkin^s lymphoma
     Dosage: 1 CYCLE
     Route: 042
     Dates: start: 20200102, end: 20200113
  2. CUBICIN [Suspect]
     Active Substance: DAPTOMYCIN
     Indication: Anaemia
     Dosage: UNK
     Route: 065
  3. CUBICIN [Suspect]
     Active Substance: DAPTOMYCIN
     Indication: Leukopenia
  4. CUBICIN [Suspect]
     Active Substance: DAPTOMYCIN
     Indication: Diffuse large B-cell lymphoma
  5. CUBICIN [Suspect]
     Active Substance: DAPTOMYCIN
     Indication: Hypertension
  6. CANCIDAS [Suspect]
     Active Substance: CASPOFUNGIN ACETATE
     Indication: Non-Hodgkin^s lymphoma
     Dosage: 50 MILLIGRAM
     Route: 042
     Dates: start: 20200105, end: 20200113
  7. CANCIDAS [Suspect]
     Active Substance: CASPOFUNGIN ACETATE
     Indication: Anaemia
     Dosage: UNK
     Route: 065
  8. MABTHERA [Suspect]
     Active Substance: RITUXIMAB
     Indication: Non-Hodgkin^s lymphoma
     Dosage: (6 CYCLES)
     Route: 058
     Dates: start: 20190625, end: 20191009
  9. MABTHERA [Suspect]
     Active Substance: RITUXIMAB
     Dosage: (1 CYCLE)
     Route: 058
     Dates: start: 20191113, end: 20191210
  10. MABTHERA [Suspect]
     Active Substance: RITUXIMAB
     Dosage: (1 CYCLE)
     Route: 042
     Dates: start: 20191222, end: 20200113
  11. MABTHERA [Suspect]
     Active Substance: RITUXIMAB
     Dosage: UNK
     Route: 065
  12. ERYTHROPOIETIN [Suspect]
     Active Substance: ERYTHROPOIETIN
     Indication: Anaemia
     Dosage: 1 CYCLE
     Dates: start: 20190523, end: 20200124
  13. CYTARABINE [Suspect]
     Active Substance: CYTARABINE
     Indication: Non-Hodgkin^s lymphoma
     Dosage: 2 CYCLES
     Route: 042
     Dates: start: 20191123, end: 20200113
  14. CYTARABINE [Suspect]
     Active Substance: CYTARABINE
     Indication: Diffuse large B-cell lymphoma
  15. VINCRISTINE SULFATE [Suspect]
     Active Substance: VINCRISTINE SULFATE
     Indication: Diffuse large B-cell lymphoma
     Dosage: UNKNOWN
  16. VINCRISTINE SULFATE [Suspect]
     Active Substance: VINCRISTINE SULFATE
     Indication: Non-Hodgkin^s lymphoma
  17. VINCRISTINE SULFATE [Suspect]
     Active Substance: VINCRISTINE SULFATE
     Indication: Hypertension
  18. VINCRISTINE SULFATE [Suspect]
     Active Substance: VINCRISTINE SULFATE
     Indication: Anaemia
  19. VINCRISTINE SULFATE [Suspect]
     Active Substance: VINCRISTINE SULFATE
     Indication: Leukopenia
  20. MEROPENEM [Suspect]
     Active Substance: MEROPENEM
     Indication: Non-Hodgkin^s lymphoma
     Dosage: 1 CYCLE 2GX3
     Route: 065
     Dates: start: 20200103, end: 20200113
  21. PREDNISONE [Suspect]
     Active Substance: PREDNISONE
     Dosage: UNK
  22. NORVASC [Suspect]
     Active Substance: AMLODIPINE BESYLATE
     Indication: Hypertension
     Dosage: 5 MILLIGRAM, 1 CYCLE
     Route: 048
     Dates: start: 20190515, end: 20190516
  23. NORVASC [Suspect]
     Active Substance: AMLODIPINE BESYLATE
     Dosage: UNK
     Route: 048
  24. NORVASC [Suspect]
     Active Substance: AMLODIPINE BESYLATE
     Dosage: UNK
     Route: 065
  25. FILGRASTIM [Suspect]
     Active Substance: FILGRASTIM
     Indication: Non-Hodgkin^s lymphoma
     Dosage: UNK
     Dates: start: 20190523, end: 20200117
  26. FILGRASTIM [Suspect]
     Active Substance: FILGRASTIM
     Indication: Leukopenia
  27. CISPLATIN [Suspect]
     Active Substance: CISPLATIN
     Dosage: 2 CYCLES
     Dates: start: 20190119, end: 20200113
  28. LOSEC [Suspect]
     Active Substance: OMEPRAZOLE
     Indication: Non-Hodgkin^s lymphoma
     Dosage: 1 CYCLES TWICE
     Route: 048
     Dates: start: 20191223, end: 20200113
  29. LOSEC [Suspect]
     Active Substance: OMEPRAZOLE
     Indication: Leukopenia
     Dosage: UNK
     Route: 065
  30. LOSEC [Suspect]
     Active Substance: OMEPRAZOLE
     Indication: Anaemia
  31. LOSEC [Suspect]
     Active Substance: OMEPRAZOLE
     Indication: Hypertension
  32. ALDACTONE [Suspect]
     Active Substance: SPIRONOLACTONE
     Indication: Non-Hodgkin^s lymphoma
     Dosage: 1 CYCLE
     Route: 048
     Dates: start: 20200105, end: 20200112
  33. ALDACTONE [Suspect]
     Active Substance: SPIRONOLACTONE
     Dosage: UNK
     Route: 042
  34. ALDACTONE [Suspect]
     Active Substance: SPIRONOLACTONE
     Dosage: UNK
     Route: 065
  35. VEPESID [Suspect]
     Active Substance: ETOPOSIDE
     Indication: Non-Hodgkin^s lymphoma
     Dosage: 2 CYCLE
     Route: 058
     Dates: start: 20191119, end: 20200113
  36. VEPESID [Suspect]
     Active Substance: ETOPOSIDE
     Indication: Diffuse large B-cell lymphoma
     Dosage: 90 MILLIGRAM (2 CYCLES)
     Route: 042
     Dates: start: 20191119, end: 20200113
  37. VEPESID [Suspect]
     Active Substance: ETOPOSIDE
     Dosage: UNK
     Route: 065
  38. DOXORUBICIN [Suspect]
     Active Substance: DOXORUBICIN
     Indication: Non-Hodgkin^s lymphoma
     Dosage: 8 CYCLES75.0MG UNKNOWN
     Dates: start: 20190513
  39. DOXORUBICIN [Suspect]
     Active Substance: DOXORUBICIN
     Indication: Diffuse large B-cell lymphoma
  40. CHLORPHENIRAMINE [Suspect]
     Active Substance: CHLORPHENIRAMINE
     Dosage: 1 CYCLE
     Dates: start: 20200110, end: 20200112
  41. ALBUMIN HUMAN [Suspect]
     Active Substance: ALBUMIN HUMAN
     Indication: Non-Hodgkin^s lymphoma
     Dosage: 1 CYLCE 50MG X2
     Dates: start: 20200110, end: 20200113
  42. CHLORPHENIRAMINE MALEATE [Suspect]
     Active Substance: CHLORPHENIRAMINE MALEATE
     Indication: Non-Hodgkin^s lymphoma
     Dosage: 1 CYCLE
     Dates: start: 20200110, end: 20200112
  43. RITUXAN HYCELA [Suspect]
     Active Substance: HYALURONIDASE (HUMAN RECOMBINANT)\RITUXIMAB
     Indication: Diffuse large B-cell lymphoma
     Dosage: 3 CYCLES
     Dates: start: 20190513, end: 20190625
  44. VALTREX [Suspect]
     Active Substance: VALACYCLOVIR HYDROCHLORIDE
     Indication: Non-Hodgkin^s lymphoma
     Dosage: UNK
     Route: 058
  45. VALTREX [Suspect]
     Active Substance: VALACYCLOVIR HYDROCHLORIDE
     Indication: Hypertension
     Dosage: UNK
     Route: 042
  46. VALTREX [Suspect]
     Active Substance: VALACYCLOVIR HYDROCHLORIDE
     Dosage: 1 CYCLE
     Route: 048
     Dates: start: 20200108, end: 20200113
  47. VALTREX [Suspect]
     Active Substance: VALACYCLOVIR HYDROCHLORIDE
     Dosage: 500 MG
     Route: 048
     Dates: start: 20190513, end: 20190516
  48. VALTREX [Suspect]
     Active Substance: VALACYCLOVIR HYDROCHLORIDE
     Dosage: UNK
     Route: 065
  49. CISPLATIN\CYTARABINE\ETOPOSIDE\METHYLPREDNISOLONE (ESHAP) [Suspect]
     Active Substance: CISPLATIN\CYTARABINE\ETOPOSIDE\METHYLPREDNISOLONE (ESHAP)
     Indication: Diffuse large B-cell lymphoma
     Dosage: 2 CYCLES
     Dates: start: 20191113, end: 20191223
  50. CYCLOPHOSPHAMIDE\DOXORUBICIN\PREDNISONE\VINCRISTINE [Suspect]
     Active Substance: CYCLOPHOSPHAMIDE\DOXORUBICIN\PREDNISONE\VINCRISTINE
     Indication: Diffuse large B-cell lymphoma
     Dosage: 8 CYCLES
     Route: 065
     Dates: start: 20190513, end: 20191013
  51. EPREX [Suspect]
     Active Substance: ERYTHROPOIETIN
     Indication: Anaemia
     Dosage: 1 CYCLE
     Dates: start: 20190523, end: 20200124
  52. LASIX [Suspect]
     Active Substance: FUROSEMIDE
     Indication: Non-Hodgkin^s lymphoma
     Dosage: 1 CYCLE
     Route: 042
     Dates: start: 20200110, end: 20200113
  53. LASIX [Suspect]
     Active Substance: FUROSEMIDE
     Dosage: UNK
     Route: 065
  54. RITUXIMAB [Suspect]
     Active Substance: RITUXIMAB
     Indication: Diffuse large B-cell lymphoma
     Dosage: 3 CYCLES
     Dates: start: 20190513, end: 20190625
  55. RITUXIMAB [Suspect]
     Active Substance: RITUXIMAB
     Dosage: 8 CYCLES
     Dates: start: 20190513, end: 20191013
  56. RITUXIMAB [Suspect]
     Active Substance: RITUXIMAB
     Dosage: 8 CYCLES
     Dates: start: 20191113, end: 20191223
  57. RITUXIMAB [Suspect]
     Active Substance: RITUXIMAB
     Dosage: 2 CYCLES
     Dates: start: 20190113, end: 20191223
  58. DOXORUBICIN HYDROCHLORIDE [Suspect]
     Active Substance: DOXORUBICIN HYDROCHLORIDE
     Indication: Non-Hodgkin^s lymphoma
     Dosage: 75 MILLIGRAM
     Dates: start: 20190513, end: 20200124
  59. DOXORUBICIN HYDROCHLORIDE [Suspect]
     Active Substance: DOXORUBICIN HYDROCHLORIDE
     Route: 042
  60. METHYLPREDNISOLONE [Suspect]
     Active Substance: METHYLPREDNISOLONE
     Indication: Diffuse large B-cell lymphoma
  61. CYTARABINE [Suspect]
     Active Substance: CYTARABINE
     Dosage: UNK
  62. CYCLOPHOSPHAMIDE [Suspect]
     Active Substance: CYCLOPHOSPHAMIDE
     Indication: Diffuse large B-cell lymphoma
     Dosage: UNK
  63. ERYTHROPOIETIN [Suspect]
     Active Substance: ERYTHROPOIETIN

REACTIONS (5)
  - Neoplasm progression [Unknown]
  - Disease progression [Unknown]
  - Diffuse large B-cell lymphoma refractory [Unknown]
  - Off label use [Unknown]
  - Product use in unapproved indication [Unknown]

NARRATIVE: CASE EVENT DATE: 20190513
